FAERS Safety Report 23415523 (Version 1)
Quarter: 2024Q1

REPORT INFORMATION
  Report Type: Other
  Country: MX (occurrence: None)
  Receive Date: 20240118
  Receipt Date: 20240118
  Transmission Date: 20240410
  Serious: Yes (Life-Threatening, Disabling, Other)
  Sender: FDA-Public Use
  Company Number: MX-ROCHE-3492979

PATIENT
  Age: 26 Year
  Sex: Female
  Weight: 85 kg

DRUGS (1)
  1. OCREVUS [Suspect]
     Active Substance: OCRELIZUMAB
     Indication: Multiple sclerosis
     Dosage: 600 MG EVERY 6 MONTHS
     Route: 042
     Dates: start: 20220919

REACTIONS (4)
  - Depression [Not Recovered/Not Resolved]
  - Limb injury [Recovering/Resolving]
  - Insomnia [Not Recovered/Not Resolved]
  - Impulsive behaviour [Not Recovered/Not Resolved]

NARRATIVE: CASE EVENT DATE: 20230501
